FAERS Safety Report 6506195-8 (Version None)
Quarter: 2009Q4

REPORT INFORMATION
  Report Type: 
  Country: None (occurrence: None)
  Receive Date: 20091218
  Receipt Date: 20091119
  Transmission Date: 20100525
  Serious: Yes (Death)
  Sender: FDA-Public Use
  Company Number: DK-ABBOTT-09P-044-0604358-00

PATIENT
  Sex: Female
  Weight: 85.3 kg

DRUGS (11)
  1. ERYTHROMYCIN [Suspect]
     Indication: DRUG USE FOR UNKNOWN INDICATION
     Route: 065
     Dates: start: 20090507
  2. IMIPRAMINE [Suspect]
     Indication: SALIVARY HYPERSECRETION
     Route: 048
     Dates: start: 20080206
  3. LYSANTIN [Suspect]
     Indication: ADVERSE DRUG REACTION
     Route: 048
     Dates: start: 20080206
  4. RIVOTRIL [Suspect]
     Indication: SEDATIVE THERAPY
     Route: 048
     Dates: start: 20090416
  5. CISORDINOL [Suspect]
     Indication: MENTAL DISORDER
     Route: 048
     Dates: start: 20080206
  6. LEPONEX [Suspect]
     Indication: ANTIPSYCHOTIC DRUG LEVEL THERAPEUTIC
     Route: 048
     Dates: start: 20080206
  7. RISPERIDONE [Suspect]
     Indication: ANTIPSYCHOTIC DRUG LEVEL THERAPEUTIC
     Route: 048
     Dates: start: 20090216
  8. TRUXAL [Suspect]
     Indication: MENTAL DISORDER
     Route: 048
     Dates: start: 20090318
  9. PARACETAMOL [Concomitant]
     Indication: PAIN
     Route: 048
     Dates: start: 19960919
  10. LACTULOSE [Concomitant]
     Indication: LAXATIVE SUPPORTIVE CARE
     Dates: start: 20041111
  11. SODIUM PICOSULFATE [Concomitant]
     Indication: LAXATIVE SUPPORTIVE CARE
     Route: 048
     Dates: start: 20070821

REACTIONS (1)
  - SUDDEN DEATH [None]
